FAERS Safety Report 5358951-X (Version None)
Quarter: 2007Q2

REPORT INFORMATION
  Report Type: 
  Country: None (occurrence: None)
  Receive Date: 20070615
  Receipt Date: 20070608
  Transmission Date: 20071010
  Serious: Yes (Hospitalization, Other)
  Sender: FDA-Public Use
  Company Number: US-ABBOTT-07P-163-0370986-00

PATIENT
  Age: 84 Year
  Sex: Female
  Weight: 58.6 kg

DRUGS (9)
  1. MAVIK [Suspect]
     Indication: DRUG USE FOR UNKNOWN INDICATION
     Route: 065
     Dates: start: 20040601, end: 20060601
  2. SPIRONOLACTONE [Suspect]
     Indication: CARDIAC FAILURE CONGESTIVE
     Route: 048
     Dates: start: 20060801, end: 20060901
  3. SPIRONOLACTONE [Suspect]
  4. METOPROLOL TARTRATE [Suspect]
     Indication: DRUG USE FOR UNKNOWN INDICATION
     Dosage: 50 MILLIGRAMS-25 MILLIGRAMS DAILY
     Route: 048
     Dates: start: 20060601, end: 20060801
  5. METOPROLOL TARTRATE [Suspect]
     Route: 048
     Dates: start: 20060801, end: 20060901
  6. FUROSEMIDE [Suspect]
     Indication: DRUG USE FOR UNKNOWN INDICATION
     Route: 048
     Dates: start: 20010101
  7. CARVEDILOL [Suspect]
     Indication: DRUG USE FOR UNKNOWN INDICATION
     Route: 065
     Dates: start: 20040601, end: 20060601
  8. ENALAPRIL MALEATE [Suspect]
     Indication: DRUG USE FOR UNKNOWN INDICATION
     Route: 048
     Dates: start: 20060601
  9. POTASSIUM CHLORIDE [Suspect]
     Indication: DRUG USE FOR UNKNOWN INDICATION
     Route: 065
     Dates: start: 20010101, end: 20060801

REACTIONS (5)
  - BLOOD POTASSIUM DECREASED [None]
  - GASTRIC CANCER [None]
  - HYPOTENSION [None]
  - MINERAL DEFICIENCY [None]
  - OEDEMA PERIPHERAL [None]
